FAERS Safety Report 12052010 (Version 1)
Quarter: 2016Q1

REPORT INFORMATION
  Report Type: Spontaneous
  Country: US (occurrence: US)
  Receive Date: 20160209
  Receipt Date: 20160209
  Transmission Date: 20160526
  Serious: No
  Sender: FDA-Public Use
  Company Number: US-GE HEALTHCARE MEDICAL DIAGNOSTICS-MYVW-PR-1601S-0002

PATIENT
  Age: 55 Year
  Sex: Male

DRUGS (3)
  1. TECHNETIUM (TC99M) GENERATOR (MANF. UNKNOWN) [Concomitant]
  2. MYOVIEW [Suspect]
     Active Substance: TECHNETIUM TC-99M TETROFOSMIN
     Indication: DIAGNOSTIC PROCEDURE
     Dosage: DOSE NOT REPORTED
     Route: 042
     Dates: start: 20160127, end: 20160127
  3. MYOVIEW [Suspect]
     Active Substance: TECHNETIUM TC-99M TETROFOSMIN
     Indication: CARDIAC DISORDER
     Dosage: DOSE NOT REPORTED
     Route: 042
     Dates: start: 20160127, end: 20160127

REACTIONS (4)
  - Pruritus [Recovering/Resolving]
  - Headache [Recovering/Resolving]
  - Anxiety [Not Recovered/Not Resolved]
  - Depression [Not Recovered/Not Resolved]

NARRATIVE: CASE EVENT DATE: 20160127
